FAERS Safety Report 17407066 (Version 1)
Quarter: 2020Q1

REPORT INFORMATION
  Report Type: Spontaneous
  Country: US (occurrence: US)
  Receive Date: 20200128
  Receipt Date: 20200128
  Transmission Date: 20200409
  Serious: No
  Sender: FDA-Public Use
  Company Number: None

PATIENT
  Age: 55 Year
  Sex: Female

DRUGS (1)
  1. DEFERASIROX 500MG TAB (X30) [Suspect]
     Active Substance: DEFERASIROX
     Dosage: ?          OTHER DOSE:4;?
     Route: 048
     Dates: start: 20191003

REACTIONS (1)
  - Throat irritation [None]

NARRATIVE: CASE EVENT DATE: 20200128
